FAERS Safety Report 10048380 (Version 1)
Quarter: 2014Q1

REPORT INFORMATION
  Report Type: Spontaneous
  Country: FR (occurrence: FR)
  Receive Date: 20140331
  Receipt Date: 20140331
  Transmission Date: 20141002
  Serious: Yes (Hospitalization)
  Sender: FDA-Public Use
  Company Number: FR-BAYER-2014-046066

PATIENT
  Age: 59 Year
  Sex: Female

DRUGS (6)
  1. STIVARGA [Suspect]
     Indication: RECTAL ADENOCARCINOMA
     Dosage: 40 MG, QID
     Route: 048
     Dates: start: 20140210, end: 20140223
  2. DOLIPRANE [Concomitant]
     Dosage: UNK UNK, PRN
  3. DUROGESIC [Concomitant]
     Dosage: 50 ?G, UNK
  4. LYRICA [Concomitant]
     Dosage: 50 MG, UNK
  5. ABSTRAL [Concomitant]
  6. LEVOTHYROX [Concomitant]
     Dosage: 50 ?G, UNK

REACTIONS (3)
  - Rectal adenocarcinoma [Not Recovered/Not Resolved]
  - Haematuria [Not Recovered/Not Resolved]
  - Hyperthermia [Recovered/Resolved]
